FAERS Safety Report 6371055-2 (Version None)
Quarter: 2009Q3

REPORT INFORMATION
  Report Type: 
  Country: None (occurrence: None)
  Receive Date: 20090923
  Receipt Date: 20090910
  Transmission Date: 20100115
  Serious: Yes (Other)
  Sender: FDA-Public Use
  Company Number: JP-PFIZER INC-2009266673

PATIENT
  Age: 35 Year

DRUGS (3)
  1. ZOLOFT [Suspect]
     Indication: AFFECTIVE DISORDER
     Dosage: 25 MG, 1X/DAY
     Route: 048
     Dates: start: 20090819, end: 20090826
  2. DOGMATYL [Suspect]
     Indication: AFFECTIVE DISORDER
     Dosage: 50 MG, 3X/DAY
     Route: 048
     Dates: start: 20090819, end: 20090825
  3. RIZE [Suspect]
     Indication: AFFECTIVE DISORDER
     Dosage: UNK
     Route: 048
     Dates: start: 20090819, end: 20090825

REACTIONS (6)
  - GENITAL SWELLING [None]
  - LOCAL SWELLING [None]
  - OEDEMA [None]
  - OEDEMA PERIPHERAL [None]
  - SWOLLEN TONGUE [None]
  - URTICARIA [None]
